FAERS Safety Report 8202028-2 (Version None)
Quarter: 2012Q1

REPORT INFORMATION
  Report Type: 
  Country: None (occurrence: None)
  Receive Date: 20120312
  Receipt Date: 20120305
  Transmission Date: 20120608
  Serious: Yes (Hospitalization, Other)
  Sender: FDA-Public Use
  Company Number: US-MERCK-1109USA01908

PATIENT
  Age: 60 Year
  Sex: Female

DRUGS (4)
  1. FOSAMAX [Suspect]
     Route: 048
     Dates: start: 19950101
  2. ACTONEL [Suspect]
     Route: 065
  3. FOSAMAX PLUS D [Suspect]
     Route: 048
     Dates: start: 20061226, end: 20090802
  4. FOSAMAX [Suspect]
     Route: 048
     Dates: end: 20061225

REACTIONS (13)
  - TIBIA FRACTURE [None]
  - PATELLOFEMORAL PAIN SYNDROME [None]
  - SURGICAL FAILURE [None]
  - FALL [None]
  - FEMUR FRACTURE [None]
  - BURSITIS [None]
  - MENISCUS LESION [None]
  - SYNOVITIS [None]
  - LOCAL SWELLING [None]
  - ECCHYMOSIS [None]
  - TOOTH DISORDER [None]
  - FIBULA FRACTURE [None]
  - POSTMENOPAUSAL HAEMORRHAGE [None]
